FAERS Safety Report 4486443-9 (Version None)
Quarter: 2004Q4

REPORT INFORMATION
  Report Type: 
  Country: None (occurrence: None)
  Receive Date: 20041026
  Receipt Date: 20041026
  Transmission Date: 20050328
  Serious: Yes (Life-Threatening, Hospitalization)
  Sender: FDA-Public Use
  Company Number: None

PATIENT
  Age: 48 Year
  Sex: Male
  Weight: 106.8 kg

DRUGS (2)
  1. TEMODAR [Suspect]
     Indication: GLIOBLASTOMA MULTIFORME
     Dosage: 480MG PO
     Route: 048
     Dates: start: 20040922, end: 20040926
  2. TOPOTECAN [Suspect]
     Dosage: 2.25MG PO
     Route: 048
     Dates: start: 20040923, end: 20040927

REACTIONS (1)
  - PULMONARY EMBOLISM [None]
